FAERS Safety Report 4647300-8 (Version None)
Quarter: 2005Q2

REPORT INFORMATION
  Report Type: 
  Country: None (occurrence: None)
  Receive Date: 20050426
  Receipt Date: 20050418
  Transmission Date: 20051028
  Serious: No
  Sender: FDA-Public Use
  Company Number: 05H-062-0297900-00

PATIENT
  Age: 71 Year
  Sex: 0

DRUGS (1)
  1. SODIUM BICARBONATE [Suspect]
     Indication: CARDIOVASCULAR DISORDER
     Dosage: INJECTION

REACTIONS (3)
  - EXTRAVASATION [None]
  - NECROSIS [None]
  - SOFT TISSUE DISORDER [None]
